FAERS Safety Report 18785117 (Version 1)
Quarter: 2021Q1

REPORT INFORMATION
  Report Type: Spontaneous
  Country: US (occurrence: US)
  Receive Date: 20210125
  Receipt Date: 20210125
  Transmission Date: 20210419
  Serious: Yes (Hospitalization)
  Sender: FDA-Public Use
  Company Number: US-RIGEL PHARMACEUTICALS, INC.-2020FOS000678

PATIENT
  Age: 89 Year
  Sex: Female

DRUGS (2)
  1. TAVALISSE [Suspect]
     Active Substance: FOSTAMATINIB
     Dosage: 150 MG, BID
     Route: 048
  2. TAVALISSE [Suspect]
     Active Substance: FOSTAMATINIB
     Indication: IMMUNE THROMBOCYTOPENIA
     Dosage: 150 MG, BID
     Route: 048
     Dates: start: 202010

REACTIONS (8)
  - Muscle spasms [Unknown]
  - Drug ineffective [Unknown]
  - Wrong technique in product usage process [Recovered/Resolved]
  - Platelet count decreased [Unknown]
  - Pancreatitis [Unknown]
  - Pain [Recovered/Resolved]
  - Cholelithiasis [Unknown]
  - Feeling abnormal [Unknown]

NARRATIVE: CASE EVENT DATE: 2020
